FAERS Safety Report 7708717-8 (Version None)
Quarter: 2011Q3

REPORT INFORMATION
  Report Type: 
  Country: None (occurrence: None)
  Receive Date: 20110824
  Receipt Date: 20110824
  Transmission Date: 20111222
  Serious: Yes (Hospitalization)
  Sender: FDA-Public Use
  Company Number: None

PATIENT
  Age: 59 Year
  Sex: Male
  Weight: 86.4 kg

DRUGS (1)
  1. OLANZAPINE [Suspect]
     Indication: OBSESSIVE-COMPULSIVE DISORDER
     Dosage: 15 MG EVERY DAY PO
     Route: 048
     Dates: start: 20101026, end: 20110816

REACTIONS (4)
  - MENTAL STATUS CHANGES [None]
  - EXCESSIVE EYE BLINKING [None]
  - TREMOR [None]
  - TARDIVE DYSKINESIA [None]
